FAERS Safety Report 11141408 (Version 1)
Quarter: 2015Q2

REPORT INFORMATION
  Report Type: Spontaneous
  Country: US (occurrence: US)
  Receive Date: 20150525
  Receipt Date: 20150525
  Transmission Date: 20150821
  Serious: No
  Sender: FDA-Public Use
  Company Number: US-JNJFOC-20130516782

PATIENT
  Age: 45 Year
  Sex: Female

DRUGS (7)
  1. EMSAM [Concomitant]
     Active Substance: SELEGILINE
     Route: 062
     Dates: start: 20130514
  2. DIAZEPAM. [Concomitant]
     Active Substance: DIAZEPAM
     Route: 048
  3. RISPERDAL CONSTA [Suspect]
     Active Substance: RISPERIDONE
     Indication: BIPOLAR DISORDER
     Route: 030
     Dates: start: 20130523
  4. RISPERDAL CONSTA [Suspect]
     Active Substance: RISPERIDONE
     Indication: ANXIETY
     Route: 030
     Dates: start: 20121112, end: 20130523
  5. RISPERDAL CONSTA [Suspect]
     Active Substance: RISPERIDONE
     Indication: BIPOLAR DISORDER
     Route: 030
     Dates: start: 20121112, end: 20130523
  6. RISPERDAL CONSTA [Suspect]
     Active Substance: RISPERIDONE
     Indication: ANXIETY
     Route: 030
     Dates: start: 20130523
  7. ALPRAZOLAM. [Concomitant]
     Active Substance: ALPRAZOLAM
     Indication: ANXIETY
     Route: 048

REACTIONS (5)
  - Myalgia [Not Recovered/Not Resolved]
  - Fatigue [Not Recovered/Not Resolved]
  - Arthralgia [Not Recovered/Not Resolved]
  - Movement disorder [Not Recovered/Not Resolved]
  - Muscle tightness [Not Recovered/Not Resolved]

NARRATIVE: CASE EVENT DATE: 201305
